FAERS Safety Report 24010031 (Version 1)
Quarter: 2024Q2

REPORT INFORMATION
  Report Type: Report from Study
  Country: CN (occurrence: CN)
  Receive Date: 20240625
  Receipt Date: 20240625
  Transmission Date: 20240716
  Serious: Yes (Other)
  Sender: FDA-Public Use
  Company Number: CN-PFIZER INC-202400198320

PATIENT
  Age: 6 Year
  Sex: Female

DRUGS (5)
  1. DOXORUBICIN HYDROCHLORIDE [Suspect]
     Active Substance: DOXORUBICIN HYDROCHLORIDE
     Indication: Hepatic sarcoma
     Dosage: 37.5 MG/M2, CYCLIC, DAILY, FOR TWO CONSECUTIVE DAYS
  2. CYCLOPHOSPHAMIDE [Suspect]
     Active Substance: CYCLOPHOSPHAMIDE
     Indication: Hepatic sarcoma
     Dosage: 2100 MG/M2, CYCLIC, DAILY FOR TWO CONSECUTIVE DAYS
  3. VINCRISTINE [Suspect]
     Active Substance: VINCRISTINE
     Indication: Hepatic sarcoma
     Dosage: 2 MG/M2, CYCLIC, FOR ONE DAY (WITH A MAXIMUM DOSE OF 2 MG)
  4. IFOSFAMIDE [Suspect]
     Active Substance: IFOSFAMIDE
     Indication: Hepatic sarcoma
     Dosage: 1800 MG/M2, CYCLIC, DAILYFOR FIVE CONSECUTIVE DAYS
  5. ETOPOSIDE [Suspect]
     Active Substance: ETOPOSIDE
     Indication: Hepatic sarcoma
     Dosage: 100 MG/M2, CYCLIC, DAILY, FOR FIVE CONSECUTIVE DAYS

REACTIONS (1)
  - Haematotoxicity [Recovering/Resolving]
